FAERS Safety Report 8010585-4 (Version None)
Quarter: 2011Q4

REPORT INFORMATION
  Report Type: 
  Country: None (occurrence: None)
  Receive Date: 20111228
  Receipt Date: 20111220
  Transmission Date: 20120403
  Serious: Yes (Other)
  Sender: FDA-Public Use
  Company Number: PHHY2011FR111380

PATIENT
  Sex: Female

DRUGS (5)
  1. ACETAMINOPHEN AND TRAMADOL HCL [Suspect]
     Indication: BACK PAIN
     Dosage: UNK UKN, UNK
     Route: 048
     Dates: start: 20111031, end: 20111102
  2. MYOLASTAN [Suspect]
     Indication: BACK PAIN
     Dosage: UNK UKN, UNK
     Route: 048
     Dates: start: 20111031, end: 20111103
  3. MIOREL [Suspect]
     Indication: BACK PAIN
     Dosage: UNK UKN, UNK
     Route: 048
     Dates: start: 20111031, end: 20111103
  4. ACETAMINOPHEN [Concomitant]
     Indication: BACK PAIN
     Dosage: UNK UKN, UNK
     Dates: start: 20111102
  5. VOLTAREN [Suspect]
     Indication: BACK PAIN
     Dosage: UNK UKN, UNK
     Route: 048
     Dates: start: 20111031, end: 20111102

REACTIONS (8)
  - URINE COLOUR ABNORMAL [None]
  - ASTHENIA [None]
  - GASTRIC DISORDER [None]
  - NAUSEA [None]
  - C-REACTIVE PROTEIN INCREASED [None]
  - PROTHROMBIN TIME SHORTENED [None]
  - HEPATITIS CHOLESTATIC [None]
  - BLOOD ALKALINE PHOSPHATASE INCREASED [None]
